FAERS Safety Report 9498296 (Version 1)
Quarter: 2013Q3

REPORT INFORMATION
  Report Type: Spontaneous
  Country: CN (occurrence: CN)
  Receive Date: 20130904
  Receipt Date: 20130904
  Transmission Date: 20140515
  Serious: Yes (Hospitalization)
  Sender: FDA-Public Use
  Company Number: CN-BAYER-2013-102962

PATIENT
  Age: 54 Year
  Sex: Male

DRUGS (1)
  1. SORAFENIB (RAF KINASE INHIBITOR) [Suspect]
     Indication: PAPILLARY THYROID CANCER
     Dosage: 400 MG, BID
     Route: 048
     Dates: start: 20100329, end: 20100405

REACTIONS (2)
  - Hepatic failure [Recovering/Resolving]
  - Off label use [None]
